FAERS Safety Report 18352090 (Version 2)
Quarter: 2020Q4

REPORT INFORMATION
  Report Type: Spontaneous
  Country: NO (occurrence: NO)
  Receive Date: 20201006
  Receipt Date: 20201102
  Transmission Date: 20210114
  Serious: Yes (Hospitalization)
  Sender: FDA-Public Use
  Company Number: NO-JNJFOC-20200943426

PATIENT
  Age: 64 Year
  Sex: Female

DRUGS (1)
  1. REMICADE [Suspect]
     Active Substance: INFLIXIMAB
     Indication: PSORIATIC ARTHROPATHY
     Dosage: 100 MG
     Route: 042
     Dates: start: 20190301, end: 2019

REACTIONS (8)
  - Cognitive disorder [Recovering/Resolving]
  - Anxiety [Recovered/Resolved]
  - Biopsy spinal cord abnormal [Unknown]
  - Psychotic disorder [Recovered/Resolved]
  - Depression [Recovered/Resolved]
  - Disturbance in attention [Recovering/Resolving]
  - Memory impairment [Recovering/Resolving]
  - Sacroiliitis [Unknown]

NARRATIVE: CASE EVENT DATE: 2019
